FAERS Safety Report 19787786 (Version 1)
Quarter: 2021Q3

REPORT INFORMATION
  Report Type: Spontaneous
  Country: US (occurrence: US)
  Receive Date: 20210903
  Receipt Date: 20210903
  Transmission Date: 20211014
  Serious: No
  Sender: FDA-Public Use
  Company Number: US-BAUSCH-BL-2021-026733

PATIENT
  Age: 75 Year
  Sex: Female

DRUGS (4)
  1. UCERIS [Suspect]
     Active Substance: BUDESONIDE
     Indication: COLITIS ULCERATIVE
     Dosage: APPROXIMATELY 1 MONTH AGO (UNKNOWN DATE)
     Route: 054
     Dates: start: 2021
  2. MESALAMINE. [Concomitant]
     Active Substance: MESALAMINE
     Indication: PRODUCT USED FOR UNKNOWN INDICATION
  3. BUDESONIDE. [Concomitant]
     Active Substance: BUDESONIDE
     Indication: PRODUCT USED FOR UNKNOWN INDICATION
  4. UCERIS [Suspect]
     Active Substance: BUDESONIDE
     Route: 065
     Dates: start: 2021

REACTIONS (4)
  - Patient dissatisfaction with device [Unknown]
  - Product dose omission issue [Unknown]
  - Drug delivery system issue [Unknown]
  - Product quality issue [Unknown]

NARRATIVE: CASE EVENT DATE: 20210725
